FAERS Safety Report 17122256 (Version 1)
Quarter: 2019Q4

REPORT INFORMATION
  Report Type: Spontaneous
  Country: CN (occurrence: CN)
  Receive Date: 20191206
  Receipt Date: 20191206
  Transmission Date: 20200122
  Serious: Yes (Other)
  Sender: FDA-Public Use
  Company Number: CN-PFIZER INC-2019520593

PATIENT
  Age: 64 Year
  Sex: Male
  Weight: 71 kg

DRUGS (1)
  1. SOLU-MEDROL [Suspect]
     Active Substance: METHYLPREDNISOLONE SODIUM SUCCINATE
     Indication: MENINGIOMA
     Dosage: 120 MG, 2X/DAY
     Route: 041
     Dates: start: 20191012, end: 20191014

REACTIONS (5)
  - Dysphoria [Recovering/Resolving]
  - Off label use [Unknown]
  - Product use in unapproved indication [Unknown]
  - Delirium [Recovering/Resolving]
  - Respiratory rate increased [Recovering/Resolving]

NARRATIVE: CASE EVENT DATE: 20191014
